FAERS Safety Report 4653879-2 (Version None)
Quarter: 2005Q2

REPORT INFORMATION
  Report Type: 
  Country: None (occurrence: None)
  Receive Date: 20050408
  Receipt Date: 20050107
  Transmission Date: 20051028
  Serious: No
  Sender: FDA-Public Use
  Company Number: 230112K05USA

PATIENT
  Age: 30 Year
  Sex: Female
  Weight: 90.7194 kg

DRUGS (1)
  1. REBIF [Suspect]
     Indication: MULTIPLE SCLEROSIS
     Dosage: 22 MCG, 3 IN 1 WEEKS, SUBCUTANEOUS
     Route: 058
     Dates: start: 20041218

REACTIONS (9)
  - FATIGUE [None]
  - HEADACHE [None]
  - INFLUENZA LIKE ILLNESS [None]
  - INJECTION SITE HAEMORRHAGE [None]
  - INJECTION SITE PAIN [None]
  - INJECTION SITE REACTION [None]
  - MYALGIA [None]
  - NAUSEA [None]
  - SOMNOLENCE [None]
